FAERS Safety Report 21641118 (Version 1)
Quarter: 2022Q4

REPORT INFORMATION
  Report Type: Report from Study
  Country: US (occurrence: US)
  Receive Date: 20221125
  Receipt Date: 20221125
  Transmission Date: 20230113
  Serious: No
  Sender: FDA-Public Use
  Company Number: US-ABBVIE-4158909

PATIENT
  Sex: Female

DRUGS (1)
  1. HUMIRA [Suspect]
     Active Substance: ADALIMUMAB
     Indication: Rheumatoid arthritis
     Dosage: FORM STRENGTH: 40 MG CITRATE FREE
     Route: 058

REACTIONS (7)
  - Upper respiratory tract infection [Unknown]
  - Pyrexia [Unknown]
  - Cough [Unknown]
  - Feeling hot [Unknown]
  - Headache [Unknown]
  - Upper respiratory tract congestion [Unknown]
  - Respiratory tract congestion [Unknown]

NARRATIVE: CASE EVENT DATE: 20220101
